FAERS Safety Report 7624995-8 (Version None)
Quarter: 2011Q3

REPORT INFORMATION
  Report Type: 
  Country: None (occurrence: None)
  Receive Date: 20110721
  Receipt Date: 20110712
  Transmission Date: 20111222
  Serious: Yes (Hospitalization, Other)
  Sender: FDA-Public Use
  Company Number: AR-BIOGENIDEC-2011BI012474

PATIENT
  Age: 55 Year
  Sex: Female
  Weight: 86 kg

DRUGS (5)
  1. KLOSIDOL [Concomitant]
     Indication: MYALGIA
     Route: 048
  2. AVONEX [Suspect]
     Indication: MULTIPLE SCLEROSIS
     Route: 030
     Dates: start: 19990101
  3. AKATINOL [Concomitant]
     Indication: MEMORY IMPAIRMENT
     Route: 048
  4. LEXAPRO [Concomitant]
     Indication: DEPRESSION
     Route: 048
     Dates: start: 20101201
  5. DICLOFENAC [Concomitant]
     Indication: MYALGIA
     Route: 048

REACTIONS (5)
  - BREAST MASS [None]
  - BREAST CANCER [None]
  - HEADACHE [None]
  - DRUG INTERACTION [None]
  - ENDOMETRIAL HYPERTROPHY [None]
